FAERS Safety Report 5422341-1 (Version None)
Quarter: 2007Q3

REPORT INFORMATION
  Report Type: 
  Country: None (occurrence: None)
  Receive Date: 20070822
  Receipt Date: 20070815
  Transmission Date: 20080115
  Serious: Yes (Other)
  Sender: FDA-Public Use
  Company Number: JP-ELI_LILLY_AND_COMPANY-JP200708004258

PATIENT
  Age: 68 Year
  Sex: Male
  Weight: 73 kg

DRUGS (18)
  1. PEMETREXED [Suspect]
     Indication: PLEURAL MESOTHELIOMA MALIGNANT
     Dosage: 880 MG, OTHER
     Route: 042
     Dates: start: 20070515, end: 20070626
  2. PEMETREXED [Suspect]
     Dosage: 660 MG, DAILY (1/D)
     Route: 042
     Dates: start: 20070718, end: 20070718
  3. CISPLATIN [Suspect]
     Indication: PLEURAL MESOTHELIOMA MALIGNANT
     Dosage: 130 MG, OTHER
     Route: 042
     Dates: start: 20070515, end: 20070626
  4. CISPLATIN [Suspect]
     Dosage: 100 MG, DAILY (1/D)
     Route: 042
     Dates: start: 20070718, end: 20070718
  5. PANVITAN [Concomitant]
     Dosage: 0.5 MG, DAILY (1/D)
     Route: 048
     Dates: start: 20070425, end: 20070810
  6. CYANOCOBALAMIN [Concomitant]
     Dosage: 1 MG, DAILY (1/D)
     Route: 030
     Dates: start: 20070503, end: 20070503
  7. DEPAS [Concomitant]
     Dosage: 0.5 MG, DAILY (1/D)
     Route: 048
  8. ZOLPIDEM [Concomitant]
     Dosage: 5 MG, DAILY (1/D)
     Route: 048
  9. ALOSENN                            /00476901/ [Concomitant]
     Dosage: 1 G, DAILY (1/D)
     Route: 048
  10. MAGNESIUM OXIDE [Concomitant]
     Dosage: 2 G, DAILY (1/D)
     Route: 048
  11. PRIMPERAN /00041901/ [Concomitant]
     Indication: PROPHYLAXIS
     Dosage: 15 MG, DAILY (1/D)
     Route: 048
  12. GASTER D /JPN/ [Concomitant]
     Indication: PROPHYLAXIS
     Dosage: 20 MG, DAILY (1/D)
     Route: 048
  13. MUCOSTA [Concomitant]
     Indication: PROPHYLAXIS
     Dosage: 200 MG, DAILY (1/D)
     Route: 048
  14. PREDONINE [Concomitant]
     Indication: PROPHYLAXIS
     Dosage: 10 MG, DAILY (1/D)
     Route: 048
  15. LOXOPROFEN [Concomitant]
     Indication: CANCER PAIN
     Dosage: 120 MG, DAILY (1/D)
     Route: 048
  16. OPSO [Concomitant]
     Indication: CANCER PAIN
     Dosage: 10 MG, DAILY (1/D)
     Route: 048
  17. OXYCONTIN [Concomitant]
     Indication: CANCER PAIN
     Dosage: 40 MG, DAILY (1/D)
     Route: 048
  18. PL GRAN. [Concomitant]
     Dosage: 3 G, DAILY (1/D)
     Route: 048
     Dates: start: 20070523, end: 20070527

REACTIONS (7)
  - ANAEMIA [None]
  - ANOREXIA [None]
  - LYMPHOCYTE COUNT DECREASED [None]
  - NAUSEA [None]
  - NEUTROPHIL COUNT DECREASED [None]
  - PLATELET COUNT DECREASED [None]
  - WHITE BLOOD CELL COUNT DECREASED [None]
